FAERS Safety Report 7153034-0 (Version None)
Quarter: 2010Q4

REPORT INFORMATION
  Report Type: 
  Country: None (occurrence: None)
  Receive Date: 20101213
  Receipt Date: 20101208
  Transmission Date: 20110411
  Serious: Yes (Death, Hospitalization)
  Sender: FDA-Public Use
  Company Number: JP-NOVOPROD-318697

PATIENT
  Age: 51 Year
  Sex: Male
  Weight: 130 kg

DRUGS (9)
  1. VICTOZA [Suspect]
     Indication: TYPE 2 DIABETES MELLITUS
     Dosage: UNK
     Route: 058
     Dates: start: 20100701, end: 20101104
  2. CONIEL [Concomitant]
     Dosage: UNK
     Route: 048
     Dates: end: 20101108
  3. BLOPRESS [Concomitant]
     Dosage: UNK
     Route: 048
     Dates: end: 20101123
  4. TANATRIL [Concomitant]
     Dosage: 5 MG, QD
     Route: 048
     Dates: end: 20101123
  5. CRESTOR [Concomitant]
     Dosage: UNK
     Route: 048
     Dates: end: 20101123
  6. AMARYL [Concomitant]
     Dosage: UNK
     Route: 048
     Dates: end: 20101108
  7. ACTOS [Concomitant]
     Dosage: UNK
     Route: 048
     Dates: end: 20101108
  8. METGLUCO [Concomitant]
     Dosage: UNK
     Route: 048
     Dates: end: 20101108
  9. SEIBULE [Concomitant]
     Dosage: UNK
     Route: 048
     Dates: end: 20101108

REACTIONS (1)
  - PANCREATIC CARCINOMA [None]
